FAERS Safety Report 8040667-2 (Version None)
Quarter: 2012Q1

REPORT INFORMATION
  Report Type: 
  Country: None (occurrence: None)
  Receive Date: 20120111
  Receipt Date: 20120105
  Transmission Date: 20120608
  Serious: No
  Sender: FDA-Public Use
  Company Number: US-AMGEN-USASP2011060906

PATIENT
  Age: 51 Year
  Sex: Female
  Weight: 57.14 kg

DRUGS (10)
  1. METHOTREXATE [Concomitant]
     Dosage: 2.5 MG, 5 TIMES/WK
     Dates: start: 20110519
  2. ZOLPIDEM TARTRATE [Concomitant]
     Dosage: UNK UNK, PRN
     Route: 048
     Dates: start: 20110921
  3. ZYRTEC [Concomitant]
     Dosage: 10 MG, QD
     Route: 048
     Dates: start: 20110519
  4. DICLOFENAC SODIUM [Concomitant]
     Dosage: 50 MG, TID
     Route: 048
  5. OMEPRAZOLE [Concomitant]
     Dosage: UNK UNK, QD
     Route: 048
  6. ENBREL [Suspect]
     Indication: RHEUMATOID ARTHRITIS
     Dosage: 50 MG, QWK
     Route: 058
     Dates: start: 20110620
  7. ENBREL [Suspect]
     Indication: FIBROMYALGIA
     Dates: start: 20110621
  8. FLEXERIL [Concomitant]
     Dosage: 50 MG, QD
     Route: 048
  9. HYDROCODONE/ACETAMINOPHEN          /00607101/ [Concomitant]
     Dosage: UNK UNK, TID
     Route: 048
  10. LEUCOVORIN CALCIUM [Concomitant]
     Dosage: UNK UNK, QD
     Route: 048
     Dates: start: 20110519

REACTIONS (6)
  - INJECTION SITE REACTION [None]
  - INJECTION SITE PAIN [None]
  - FIBROMYALGIA [None]
  - STRESS [None]
  - RHEUMATOID ARTHRITIS [None]
  - MUSCULOSKELETAL CHEST PAIN [None]
